FAERS Safety Report 6489896-X (Version None)
Quarter: 2009Q4

REPORT INFORMATION
  Report Type: 
  Country: None (occurrence: None)
  Receive Date: 20091211
  Receipt Date: 20091203
  Transmission Date: 20100525
  Serious: Yes (Other)
  Sender: FDA-Public Use
  Company Number: GB-JNJFOC-20091202189

PATIENT

DRUGS (1)
  1. LEUSTATIN [Suspect]
     Indication: HISTIOCYTOSIS
     Route: 065

REACTIONS (2)
  - JAUNDICE [None]
  - LIVER DISORDER [None]
